FAERS Safety Report 25434431 (Version 1)
Quarter: 2025Q2

REPORT INFORMATION
  Report Type: Spontaneous
  Country: US (occurrence: US)
  Receive Date: 20250613
  Receipt Date: 20250613
  Transmission Date: 20250716
  Serious: Yes (Other)
  Sender: Unknown Manufacturer
  Company Number: US-THERATECHNOLOGIES INC.-2025-THE-TES-000144

PATIENT

DRUGS (1)
  1. EGRIFTA SV [Suspect]
     Active Substance: TESAMORELIN ACETATE
     Indication: Lipodystrophy acquired
     Dosage: 0.35 ML, QD
     Route: 058
     Dates: start: 2023

REACTIONS (1)
  - Malignant melanoma stage 0 [Unknown]

NARRATIVE: CASE EVENT DATE: 20250101
